FAERS Safety Report 24927543 (Version 2)
Quarter: 2025Q1

REPORT INFORMATION
  Report Type: Spontaneous
  Country: CL (occurrence: CL)
  Receive Date: 20250205
  Receipt Date: 20250328
  Transmission Date: 20250409
  Serious: Yes (Hospitalization)
  Sender: ROCHE
  Company Number: CL-ROCHE-10000194591

PATIENT
  Age: 2 Year
  Sex: Male

DRUGS (4)
  1. ACTEMRA [Suspect]
     Active Substance: TOCILIZUMAB
     Indication: Juvenile idiopathic arthritis
     Route: 058
     Dates: start: 202412, end: 20250120
  2. ACTEMRA [Suspect]
     Active Substance: TOCILIZUMAB
     Indication: Juvenile idiopathic arthritis
     Route: 042
     Dates: start: 20250131
  3. CYCLOSPORINE [Concomitant]
     Active Substance: CYCLOSPORINE
     Dates: start: 202410
  4. PREDNISONE [Concomitant]
     Active Substance: PREDNISONE
     Dates: start: 202410

REACTIONS (6)
  - Pyrexia [Recovered/Resolved]
  - Application site pain [Recovered/Resolved]
  - Product quality issue [Unknown]
  - Wrong technique in product usage process [Unknown]
  - Incorrect drug administration rate [Unknown]
  - Juvenile idiopathic arthritis [Unknown]
